FAERS Safety Report 9904341 (Version 1)
Quarter: 2014Q1

REPORT INFORMATION
  Report Type: Report from Study
  Country: US (occurrence: US)
  Receive Date: 20140218
  Receipt Date: 20140218
  Transmission Date: 20141002
  Serious: Yes (Other)
  Sender: FDA-Public Use
  Company Number: US-ROCHE-1348257

PATIENT
  Sex: Male
  Weight: 50.4 kg

DRUGS (4)
  1. NUTROPIN AQ [Suspect]
     Indication: BODY HEIGHT BELOW NORMAL
     Route: 058
     Dates: end: 20140117
  2. NUTROPIN AQ [Suspect]
     Route: 058
     Dates: start: 20140117
  3. SYNTHROID [Concomitant]
     Route: 048
  4. ARIMIDEX [Concomitant]
     Route: 048

REACTIONS (1)
  - Hypocalcaemia [Unknown]
